FAERS Safety Report 18827785 (Version 2)
Quarter: 2021Q1

REPORT INFORMATION
  Report Type: Report from Study
  Country: None (occurrence: TW)
  Receive Date: 20210202
  Receipt Date: 20210222
  Transmission Date: 20210419
  Serious: Yes (Hospitalization)
  Sender: FDA-Public Use
  Company Number: TW-ABBVIE-21K-153-3752067-00

PATIENT
  Age: 50 Year
  Sex: Male
  Weight: 50 kg

DRUGS (2)
  1. HUMIRA [Suspect]
     Active Substance: ADALIMUMAB
     Indication: CROHN^S DISEASE
     Route: 058
     Dates: start: 20200910
  2. AZATHIOPRINE. [Concomitant]
     Active Substance: AZATHIOPRINE
     Indication: CROHN^S DISEASE
     Route: 048
     Dates: start: 20140428

REACTIONS (8)
  - Infrequent bowel movements [Recovering/Resolving]
  - Abdominal distension [Recovering/Resolving]
  - Intestinal dilatation [Recovering/Resolving]
  - Abdominal pain upper [Unknown]
  - Flatulence [Recovering/Resolving]
  - Large intestinal stenosis [Recovered/Resolved]
  - Abdominal pain [Recovered/Resolved]
  - Decreased appetite [Unknown]

NARRATIVE: CASE EVENT DATE: 20210129
